FAERS Safety Report 13912037 (Version 1)
Quarter: 2017Q3

REPORT INFORMATION
  Report Type: Spontaneous
  Country: US (occurrence: US)
  Receive Date: 20170828
  Receipt Date: 20170828
  Transmission Date: 20171127
  Serious: No
  Sender: FDA-Public Use
  Company Number: US-ROCHE-GNE317145

PATIENT
  Sex: Female

DRUGS (2)
  1. NUTROPIN AQ [Suspect]
     Active Substance: SOMATROPIN
     Indication: PRODUCT USED FOR UNKNOWN INDICATION
     Dosage: 2.6 MG, UNK
     Route: 058
     Dates: start: 20110405
  2. NUTROPIN AQ [Suspect]
     Active Substance: SOMATROPIN
     Dosage: 2.4 MG, UNK
     Route: 065

REACTIONS (2)
  - Joint swelling [Not Recovered/Not Resolved]
  - Arthralgia [None]
